FAERS Safety Report 5716471-4 (Version None)
Quarter: 2008Q2

REPORT INFORMATION
  Report Type: 
  Country: None (occurrence: None)
  Receive Date: 20080424
  Receipt Date: 20080416
  Transmission Date: 20081010
  Serious: Yes (Death, Life-Threatening, Hospitalization, Other)
  Sender: FDA-Public Use
  Company Number: US-BRISTOL-MYERS SQUIBB COMPANY-14153860

PATIENT
  Age: 53 Year
  Sex: Female

DRUGS (9)
  1. REYATAZ [Suspect]
     Indication: HIV INFECTION
     Route: 048
  2. ZIAGEN [Suspect]
     Indication: HIV INFECTION
     Route: 048
  3. EPIVIR [Suspect]
     Indication: HIV INFECTION
     Route: 048
  4. RITONAVIR [Suspect]
     Indication: HIV INFECTION
     Route: 048
  5. COMBIVIR [Suspect]
  6. KALETRA [Suspect]
  7. ROSUVASTATIN CALCIUM [Concomitant]
  8. FENOFIBRATE [Concomitant]
  9. SUSTIVA [Concomitant]

REACTIONS (11)
  - BLOOD BILIRUBIN INCREASED [None]
  - CARDIAC ARREST [None]
  - CD4 LYMPHOCYTES DECREASED [None]
  - CEREBROVASCULAR ACCIDENT [None]
  - GENERAL PHYSICAL HEALTH DETERIORATION [None]
  - HEMIPARESIS [None]
  - HEPATIC ENZYME INCREASED [None]
  - IDIOPATHIC THROMBOCYTOPENIC PURPURA [None]
  - MENTAL STATUS CHANGES [None]
  - MYOCARDIAL INFARCTION [None]
  - RENAL FAILURE ACUTE [None]
